FAERS Safety Report 10777592 (Version 1)
Quarter: 2015Q1

REPORT INFORMATION
  Report Type: Spontaneous
  Country: GB (occurrence: GB)
  Receive Date: 20150209
  Receipt Date: 20150209
  Transmission Date: 20150721
  Serious: Yes (Life-Threatening, Other)
  Sender: FDA-Public Use
  Company Number: GB-ELI_LILLY_AND_COMPANY-GB201502000931

PATIENT
  Age: 55 Year
  Sex: Female

DRUGS (26)
  1. MORPHINE SULPHATE [Concomitant]
     Active Substance: MORPHINE SULFATE
     Dosage: 20 MG OVER 24HOURS INFUSION; 5-10MG PRN
     Route: 058
  2. METOCLOPRAMIDE. [Concomitant]
     Active Substance: METOCLOPRAMIDE
     Dosage: 24 HOUR INFUSION
     Route: 058
  3. CARBOCISTEINE G GAM [Concomitant]
     Dosage: 750 MG, TID
     Route: 048
  4. CHLORHEXIDINE [Concomitant]
     Active Substance: CHLORHEXIDINE
     Dosage: 10 ML, BID
     Route: 048
  5. LORAZEPAM. [Concomitant]
     Active Substance: LORAZEPAM
     Indication: DYSPNOEA
     Dosage: 0.5-1 MG PRN
  6. MORPHINE SULPHATE [Concomitant]
     Active Substance: MORPHINE SULFATE
     Dosage: NK
  7. DEXAMETHASONE. [Concomitant]
     Active Substance: DEXAMETHASONE
     Dosage: 4 MG, BID
     Route: 048
  8. SENNA [Concomitant]
     Active Substance: SENNA LEAF\SENNOSIDES\SENNOSIDES A AND B
     Dosage: 15 MG, QD
     Route: 048
  9. HYOSCINE HYDROBROMIDE [Concomitant]
     Active Substance: SCOPOLAMINE
     Dosage: 400 MG, UNKNOWN
     Route: 065
  10. PREDNISOLONE. [Concomitant]
     Active Substance: PREDNISOLONE
     Dosage: 20 MG, QD
     Route: 048
  11. DOCUSATE [Concomitant]
     Active Substance: DOCUSATE
     Dosage: 200 MG, BID
     Route: 048
  12. NEFOPAM [Concomitant]
     Active Substance: NEFOPAM
     Dosage: 60 MG, TID
     Route: 048
  13. BIOTENE DRY MOUTH [Concomitant]
     Indication: PRODUCT USED FOR UNKNOWN INDICATION
     Dosage: 1 DF, QID
     Route: 048
  14. IPRATROPIUM [Concomitant]
     Active Substance: IPRATROPIUM
     Dosage: 500 MG, QID
  15. PEMETREXED [Suspect]
     Active Substance: PEMETREXED
     Indication: LUNG NEOPLASM MALIGNANT
     Dosage: UNK
     Route: 042
     Dates: start: 20141209, end: 20141209
  16. CARBOPLATIN. [Suspect]
     Active Substance: CARBOPLATIN
     Indication: LUNG NEOPLASM MALIGNANT
     Dosage: UNK
     Route: 042
     Dates: start: 20141209, end: 20141209
  17. TINZAPARIN [Concomitant]
     Active Substance: TINZAPARIN
     Dosage: 11000 IU, QD
     Route: 058
  18. APO-FOLIC ACID [Concomitant]
     Active Substance: FOLIC ACID
     Dosage: 400 MG, QD
     Route: 048
  19. OLANZAPINE. [Concomitant]
     Active Substance: OLANZAPINE
     Dosage: 15 MG, QD
     Route: 048
  20. LANSOPRAZOLE. [Concomitant]
     Active Substance: LANSOPRAZOLE
     Dosage: 30 MG, QD
     Route: 048
  21. SALBUTAMOL [Concomitant]
     Active Substance: ALBUTEROL
     Dosage: 2.5 MG, QID
  22. CODEINE PHOSPHATE [Concomitant]
     Active Substance: CODEINE PHOSPHATE
     Dosage: 30 MG, QID
     Route: 048
  23. MIDAZOLAM [Concomitant]
     Active Substance: MIDAZOLAM\MIDAZOLAM HYDROCHLORIDE
     Dosage: 15MG 24 HOUR INFUSION; 2.5-5MG PRN
     Route: 058
  24. AMITRIPTYLINE [Concomitant]
     Active Substance: AMITRIPTYLINE
     Dosage: 100 MG, QD
     Route: 048
  25. PROPRANOLOL [Concomitant]
     Active Substance: PROPRANOLOL\PROPRANOLOL HYDROCHLORIDE
     Dosage: 40 MG, QD
     Route: 048
  26. PARACETAMOL [Concomitant]
     Active Substance: ACETAMINOPHEN
     Dosage: 1 G, QID
     Route: 048

REACTIONS (4)
  - Malignant neoplasm progression [Unknown]
  - Off label use [Unknown]
  - Pulmonary fibrosis [Not Recovered/Not Resolved]
  - Pulmonary embolism [Not Recovered/Not Resolved]

NARRATIVE: CASE EVENT DATE: 20141212
